FAERS Safety Report 11130410 (Version 3)
Quarter: 2015Q2

REPORT INFORMATION
  Report Type: Spontaneous
  Country: SK (occurrence: SK)
  Receive Date: 20150522
  Receipt Date: 20150605
  Transmission Date: 20150821
  Serious: Yes (Death, Hospitalization, Other)
  Sender: FDA-Public Use
  Company Number: SK-ROCHE-1581586

PATIENT
  Age: 83 Year
  Sex: Male

DRUGS (5)
  1. SPIROPENT [Concomitant]
     Active Substance: CLENBUTEROL HYDROCHLORIDE
  2. ATROVENT [Concomitant]
     Active Substance: IPRATROPIUM BROMIDE
  3. XOLAIR [Suspect]
     Active Substance: OMALIZUMAB
     Route: 058
     Dates: start: 20150508, end: 20150508
  4. XOLAIR [Suspect]
     Active Substance: OMALIZUMAB
     Indication: ASTHMA
     Route: 058
     Dates: start: 201004
  5. SYMBICORT [Concomitant]
     Active Substance: BUDESONIDE\FORMOTEROL FUMARATE DIHYDRATE

REACTIONS (7)
  - Gastric ulcer perforation [Not Recovered/Not Resolved]
  - Post procedural complication [Fatal]
  - Bronchopneumonia [Fatal]
  - Peritonitis [Fatal]
  - Cardiopulmonary failure [Fatal]
  - Respiratory failure [Fatal]
  - Cardiac disorder [Not Recovered/Not Resolved]

NARRATIVE: CASE EVENT DATE: 20150508
